FAERS Safety Report 23163054 (Version 1)
Quarter: 2023Q4

REPORT INFORMATION
  Report Type: Spontaneous
  Country: CN (occurrence: CN)
  Receive Date: 20231109
  Receipt Date: 20231109
  Transmission Date: 20240110
  Serious: Yes (Hospitalization, Other)
  Sender: FDA-Public Use
  Company Number: CN-SA-SAC20231107000009

PATIENT
  Age: 69 Year
  Sex: Male
  Weight: 75 kg

DRUGS (5)
  1. CLOPIDOGREL BISULFATE [Suspect]
     Active Substance: CLOPIDOGREL BISULFATE
     Indication: Antiplatelet therapy
     Dosage: 75 MG, QD
     Route: 048
     Dates: start: 20230910, end: 20230913
  2. INDOBUFEN [Suspect]
     Active Substance: INDOBUFEN
     Indication: Gout
     Dosage: 10 MG, BID
     Route: 048
     Dates: start: 20190910, end: 20230913
  3. DICLOFENAC SODIUM [Suspect]
     Active Substance: DICLOFENAC\DICLOFENAC SODIUM
     Indication: Gout
     Dosage: 50 MG, BID
     Route: 048
     Dates: start: 20230830, end: 20230904
  4. PREDNISONE ACETATE [Suspect]
     Active Substance: PREDNISONE ACETATE
     Indication: Gout
     Dosage: 5 MG, QD
     Dates: start: 20230830, end: 20230904
  5. ETORICOXIB [Concomitant]
     Active Substance: ETORICOXIB
     Indication: Gout
     Dosage: 1 DF, QD
     Route: 048

REACTIONS (12)
  - Amaurosis [Recovering/Resolving]
  - Cushingoid [Recovering/Resolving]
  - Upper gastrointestinal haemorrhage [Recovering/Resolving]
  - Palpitations [Recovering/Resolving]
  - Haematemesis [Recovering/Resolving]
  - Melaena [Recovering/Resolving]
  - Faeces discoloured [Recovering/Resolving]
  - Abdominal pain [Recovering/Resolving]
  - Hyperhidrosis [Recovering/Resolving]
  - Asthenia [Recovering/Resolving]
  - Dizziness [Recovering/Resolving]
  - Anaemia [Recovering/Resolving]

NARRATIVE: CASE EVENT DATE: 20230913
